FAERS Safety Report 11025109 (Version 1)
Quarter: 2015Q2

REPORT INFORMATION
  Report Type: Spontaneous
  Country: US (occurrence: US)
  Receive Date: 20150414
  Receipt Date: 20150414
  Transmission Date: 20150821
  Serious: Yes (Hospitalization, Other)
  Sender: FDA-Public Use
  Company Number: US-JNJFOC-20150403414

PATIENT
  Age: 60 Year
  Sex: Male
  Weight: 166.02 kg

DRUGS (2)
  1. XARELTO [Suspect]
     Active Substance: RIVAROXABAN
     Indication: CEREBROVASCULAR ACCIDENT PROPHYLAXIS
     Route: 048
     Dates: start: 2012
  2. XARELTO [Suspect]
     Active Substance: RIVAROXABAN
     Indication: ATRIAL FIBRILLATION
     Route: 048
     Dates: start: 2012

REACTIONS (7)
  - Accidental overdose [Recovered/Resolved]
  - Pyrexia [Recovered/Resolved]
  - Vascular rupture [Recovered/Resolved]
  - Influenza like illness [Recovered/Resolved]
  - Red blood cell count decreased [Recovered/Resolved]
  - Bleeding time prolonged [Recovered/Resolved]
  - Cholelithiasis [Not Recovered/Not Resolved]

NARRATIVE: CASE EVENT DATE: 201411
